FAERS Safety Report 20051841 (Version 2)
Quarter: 2022Q1

REPORT INFORMATION
  Report Type: Spontaneous
  Country: US (occurrence: US)
  Receive Date: 20211110
  Receipt Date: 20220214
  Transmission Date: 20220423
  Serious: No
  Sender: FDA-Public Use
  Company Number: US-HORIZON THERAPEUTICS-HZN-2021-006961

PATIENT
  Sex: Male

DRUGS (10)
  1. TEPEZZA [Suspect]
     Active Substance: TEPROTUMUMAB-TRBW
     Indication: Endocrine ophthalmopathy
     Dosage: 740 MG, FIRST INFUSION
     Route: 042
     Dates: start: 20210430
  2. TEPEZZA [Suspect]
     Active Substance: TEPROTUMUMAB-TRBW
     Dosage: 1500 MG, SECOND INFUSION
     Route: 042
     Dates: start: 20210521
  3. TEPEZZA [Suspect]
     Active Substance: TEPROTUMUMAB-TRBW
     Dosage: 1500 MG, THIRD INFUSION
     Route: 042
     Dates: start: 20210611
  4. TEPEZZA [Suspect]
     Active Substance: TEPROTUMUMAB-TRBW
     Dosage: 1500 MG, FOURTH INFUSION
     Route: 042
     Dates: start: 20210707
  5. TEPEZZA [Suspect]
     Active Substance: TEPROTUMUMAB-TRBW
     Dosage: 1500 MG, FIFTH INFUSION
     Route: 042
     Dates: start: 20210727
  6. TEPEZZA [Suspect]
     Active Substance: TEPROTUMUMAB-TRBW
     Dosage: 1500 MG, SIXTH INFUSION
     Route: 042
     Dates: start: 20210818
  7. TEPEZZA [Suspect]
     Active Substance: TEPROTUMUMAB-TRBW
     Dosage: 1500 MG, SEVENTH INFUSION
     Route: 042
     Dates: start: 20210907
  8. TEPEZZA [Suspect]
     Active Substance: TEPROTUMUMAB-TRBW
     Dosage: 1500 MG, EIGHTH INFUSION
     Route: 042
     Dates: start: 20210929
  9. METHIMAZOLE [Concomitant]
     Active Substance: METHIMAZOLE
     Dosage: 5 MG
     Route: 065
  10. METHIMAZOLE [Concomitant]
     Active Substance: METHIMAZOLE
     Dosage: 10 MG
     Route: 065

REACTIONS (5)
  - Nail disorder [Unknown]
  - Hypoacusis [Unknown]
  - Muscle spasms [Unknown]
  - Fatigue [Recovered/Resolved]
  - Inappropriate schedule of product administration [Unknown]
